FAERS Safety Report 4616190-1 (Version None)
Quarter: 2005Q1

REPORT INFORMATION
  Report Type: 
  Country: None (occurrence: None)
  Receive Date: 20050321
  Receipt Date: 20050307
  Transmission Date: 20050727
  Serious: Yes (Other)
  Sender: FDA-Public Use
  Company Number: GXKR2005JP00756

PATIENT
  Age: 70 Year
  Sex: Male

DRUGS (3)
  1. RIMACTANE [Suspect]
     Indication: TUBERCULOSIS
     Dosage: ORAL
     Route: 048
     Dates: start: 20050211
  2. ISCONTIN (ISONIAZID) [Suspect]
  3. ESANBUTOL (ETHAMBUTOL) [Suspect]
     Dosage: ORAL
     Route: 048

REACTIONS (1)
  - TOXIC EPIDERMAL NECROLYSIS [None]
